FAERS Safety Report 4441832-3 (Version None)
Quarter: 2004Q3

REPORT INFORMATION
  Report Type: 
  Country: None (occurrence: None)
  Receive Date: 20040901
  Receipt Date: 20040819
  Transmission Date: 20050211
  Serious: Yes (Hospitalization)
  Sender: FDA-Public Use
  Company Number: 2004056486

PATIENT
  Age: 76 Year
  Sex: Female

DRUGS (2)
  1. DIFLUCAN [Suspect]
     Indication: GRANULOMA
     Dosage: ORAL
     Route: 048
     Dates: start: 20040721
  2. ITRACONAZOLE [Suspect]
     Indication: GRANULOMA
     Dosage: ORAL
     Route: 048
     Dates: start: 20040721

REACTIONS (1)
  - CHEST PAIN [None]
